FAERS Safety Report 7333838-1 (Version None)
Quarter: 2011Q1

REPORT INFORMATION
  Report Type: 
  Country: None (occurrence: None)
  Receive Date: 20110307
  Receipt Date: 20110225
  Transmission Date: 20110831
  Serious: Yes (Other)
  Sender: FDA-Public Use
  Company Number: AR-AMGEN-ARGSP2011010163

PATIENT
  Age: 53 Year
  Sex: Female
  Weight: 96 kg

DRUGS (1)
  1. ENBREL [Suspect]
     Indication: PSORIATIC ARTHROPATHY
     Dosage: 50 MG, QWK
     Route: 058
     Dates: start: 20080101, end: 20110101

REACTIONS (3)
  - VISUAL ACUITY REDUCED [None]
  - CATARACT [None]
  - UVEITIS [None]
